FAERS Safety Report 5903529-X (Version None)
Quarter: 2008Q3

REPORT INFORMATION
  Report Type: 
  Country: None (occurrence: None)
  Receive Date: 20080930
  Receipt Date: 20080918
  Transmission Date: 20090109
  Serious: Yes (Other)
  Sender: FDA-Public Use
  Company Number: US-PFIZER INC-2008079275

PATIENT
  Sex: Male
  Weight: 81.6 kg

DRUGS (6)
  1. SOLU-MEDROL [Suspect]
     Indication: ARTHROPOD STING
     Dates: start: 20080916
  2. ACIPHEX [Concomitant]
     Indication: GASTROOESOPHAGEAL REFLUX DISEASE
  3. LIPITOR [Concomitant]
     Indication: BLOOD CHOLESTEROL INCREASED
  4. GLUCOPHAGE [Concomitant]
     Indication: DIABETES MELLITUS
  5. STARLIX [Concomitant]
     Indication: DIABETES MELLITUS
  6. TESTOSTERONE [Concomitant]
     Indication: BLOOD TESTOSTERONE DECREASED

REACTIONS (4)
  - CONVULSION [None]
  - HEADACHE [None]
  - HYPERSENSITIVITY [None]
  - NAUSEA [None]
